FAERS Safety Report 8068299-0 (Version None)
Quarter: 2012Q1

REPORT INFORMATION
  Report Type: 
  Country: None (occurrence: None)
  Receive Date: 20120124
  Receipt Date: 20111010
  Transmission Date: 20120608
  Serious: No
  Sender: FDA-Public Use
  Company Number: US-AMGEN-USASP2011052294

PATIENT
  Age: 73 Year
  Sex: Female

DRUGS (15)
  1. PROLIA [Suspect]
     Indication: OSTEOPOROSIS POSTMENOPAUSAL
     Dosage: 60 MG, Q6MO
     Dates: start: 20110401
  2. ACTOS [Concomitant]
     Dosage: UNK
  3. TRAZODONE HCL [Concomitant]
     Dosage: UNK
  4. PRAVACHOL [Concomitant]
     Dosage: UNK
  5. CARDIZEM [Concomitant]
     Dosage: UNK
  6. CELEXA [Concomitant]
     Dosage: UNK
  7. NEXIUM [Concomitant]
     Dosage: UNK
  8. LEVEMIR [Concomitant]
     Dosage: UNK
  9. VITAMIN D [Concomitant]
     Dosage: UNK
  10. XANAX [Concomitant]
     Dosage: UNK
  11. MULTI-VITAMIN [Concomitant]
     Dosage: UNK
  12. GLIPIZIDE [Concomitant]
     Dosage: UNK
  13. CYMBALTA [Concomitant]
     Dosage: UNK
  14. FUROSEMIDE [Concomitant]
     Dosage: UNK
  15. TOPROL-XL [Concomitant]
     Dosage: UNK

REACTIONS (2)
  - TOOTH EXTRACTION [None]
  - BONE PAIN [None]
